FAERS Safety Report 10101585 (Version 1)
Quarter: 2014Q2

REPORT INFORMATION
  Report Type: Spontaneous
  Country: DE (occurrence: None)
  Receive Date: 20140422
  Receipt Date: 20140422
  Transmission Date: 20141212
  Serious: Yes (Other)
  Sender: FDA-Public Use
  Company Number: FK201401316

PATIENT
  Age: 42 Year
  Sex: Female

DRUGS (2)
  1. CEFAZOLINA LABESFAL [Suspect]
     Indication: INFECTION PROPHYLAXIS
     Route: 042
     Dates: start: 20140326, end: 20140326
  2. OXYTOCIN [Suspect]

REACTIONS (3)
  - Rash generalised [None]
  - Hypotension [None]
  - Nausea [None]
